FAERS Safety Report 24962716 (Version 3)
Quarter: 2025Q2

REPORT INFORMATION
  Report Type: Spontaneous
  Country: JP (occurrence: JP)
  Receive Date: 20250212
  Receipt Date: 20250520
  Transmission Date: 20250717
  Serious: Yes (Other)
  Sender: GLAXOSMITHKLINE
  Company Number: JP-GSK-JP2025JPN015368

PATIENT

DRUGS (6)
  1. DAPRODUSTAT [Suspect]
     Active Substance: DAPRODUSTAT
     Indication: Nephrogenic anaemia
     Route: 048
     Dates: start: 202207
  2. DAPRODUSTAT [Suspect]
     Active Substance: DAPRODUSTAT
  3. DAPRODUSTAT [Suspect]
     Active Substance: DAPRODUSTAT
  4. DAPRODUSTAT [Suspect]
     Active Substance: DAPRODUSTAT
  5. DAPRODUSTAT [Suspect]
     Active Substance: DAPRODUSTAT
  6. EPOETIN ALFA [Concomitant]
     Active Substance: ERYTHROPOIETIN
     Dosage: 750 ?G, WE

REACTIONS (2)
  - Shunt aneurysm [Recovered/Resolved]
  - Shunt malfunction [Recovered/Resolved]

NARRATIVE: CASE EVENT DATE: 20240101
